FAERS Safety Report 15477300 (Version 1)
Quarter: 2018Q4

REPORT INFORMATION
  Report Type: Spontaneous
  Country: US (occurrence: US)
  Receive Date: 20181009
  Receipt Date: 20181009
  Transmission Date: 20190205
  Serious: No
  Sender: FDA-Public Use
  Company Number: US-TEVA-2018-US-961713

PATIENT
  Sex: Male

DRUGS (1)
  1. METOPROLOL. [Suspect]
     Active Substance: METOPROLOL
     Dosage: 50 MILLIGRAM DAILY;
     Route: 065
     Dates: start: 20180828, end: 20181003

REACTIONS (4)
  - Pruritus [Unknown]
  - Alopecia [Unknown]
  - Skin burning sensation [Unknown]
  - Pain [Unknown]
